FAERS Safety Report 7460694-3 (Version None)
Quarter: 2011Q2

REPORT INFORMATION
  Report Type: 
  Country: None (occurrence: None)
  Receive Date: 20110505
  Receipt Date: 20110505
  Transmission Date: 20111010
  Serious: Yes (Other)
  Sender: FDA-Public Use
  Company Number: GB-EISAI INC-E2020-09094-SPO-GB

PATIENT

DRUGS (2)
  1. EBIXA [Suspect]
     Dosage: UNKNOWN
     Route: 048
  2. ARICEPT [Suspect]
     Dosage: UNKNOWN
     Route: 048

REACTIONS (1)
  - ELECTROCARDIOGRAM QT PROLONGED [None]
